FAERS Safety Report 10726195 (Version 1)
Quarter: 2015Q1

REPORT INFORMATION
  Report Type: Spontaneous
  Country: TW (occurrence: None)
  Receive Date: 20150116
  Receipt Date: 20150116
  Transmission Date: 20150721
  Serious: Yes (Hospitalization, Other)
  Sender: FDA-Public Use
  Company Number: DEP_02452_2015

PATIENT
  Age: 64 Year
  Sex: Female

DRUGS (2)
  1. DICLOFENAC [Suspect]
     Active Substance: DICLOFENAC
     Dosage: A FEW YEARS UNTIL NOT CONTINUING?
  2. DICLOFENAC [Suspect]
     Active Substance: DICLOFENAC
     Indication: BACK PAIN
     Dosage: A FEW YEARS UNTIL NOT CONTINUING?

REACTIONS (20)
  - Septic shock [None]
  - Hyperkalaemia [None]
  - Decreased appetite [None]
  - Colitis [None]
  - Metabolic acidosis [None]
  - Ileal ulcer [None]
  - Pollakiuria [None]
  - Splenic abscess [None]
  - Haematuria [None]
  - Acute kidney injury [None]
  - Micturition urgency [None]
  - Somnolence [None]
  - Blood pressure decreased [None]
  - Nausea [None]
  - Pneumonia klebsiella [None]
  - Renal abscess [None]
  - Haemorrhoids [None]
  - Acute respiratory failure [None]
  - Gastrointestinal necrosis [None]
  - Melanosis coli [None]
